FAERS Safety Report 12795159 (Version 1)
Quarter: 2016Q3

REPORT INFORMATION
  Report Type: Spontaneous
  Country: US (occurrence: US)
  Receive Date: 20160929
  Receipt Date: 20160929
  Transmission Date: 20161109
  Serious: Yes (Other)
  Sender: FDA-Public Use
  Company Number: US-DSJP-DSU-2016-132009

PATIENT

DRUGS (1)
  1. BENICAR HCT [Suspect]
     Active Substance: HYDROCHLOROTHIAZIDE\OLMESARTAN MEDOXOMIL
     Indication: PRODUCT USED FOR UNKNOWN INDICATION
     Dosage: UNK
     Dates: start: 2005

REACTIONS (5)
  - Appendicectomy [Unknown]
  - Gallbladder operation [Unknown]
  - Gastroenteritis [Unknown]
  - Gastrointestinal wall thickening [Unknown]
  - Lymphadenopathy [Unknown]
